FAERS Safety Report 9601581 (Version 1)
Quarter: 2013Q4

REPORT INFORMATION
  Report Type: Report from Study
  Country: PL (occurrence: PL)
  Receive Date: 20131007
  Receipt Date: 20131007
  Transmission Date: 20140711
  Serious: Yes (Other)
  Sender: FDA-Public Use
  Company Number: PL-ROCHE-1285056

PATIENT
  Sex: 0

DRUGS (3)
  1. ALTEPLASE [Suspect]
     Indication: PERIPHERAL ISCHAEMIA
     Dosage: 0.2 MG/ML
     Route: 042
  2. HEPARIN [Suspect]
     Indication: PERIPHERAL ISCHAEMIA
     Dosage: 500 U/HOUR
     Route: 065
  3. CLEXANE [Suspect]
     Indication: PERIPHERAL ISCHAEMIA
     Route: 065

REACTIONS (1)
  - Renal failure [Unknown]
